FAERS Safety Report 10800960 (Version 2)
Quarter: 2015Q1

REPORT INFORMATION
  Report Type: Spontaneous
  Country: US (occurrence: US)
  Receive Date: 20150216
  Receipt Date: 20150216
  Transmission Date: 20150721
  Serious: No
  Sender: FDA-Public Use
  Company Number: US-ALLERGAN-1420758US

PATIENT
  Sex: Female

DRUGS (3)
  1. RESTASIS [Suspect]
     Active Substance: CYCLOSPORINE
     Indication: DRY EYE
     Dosage: UNK UNK, QAM
     Route: 047
     Dates: end: 201406
  2. LATANOPROST. [Concomitant]
     Active Substance: LATANOPROST
  3. RESTASIS [Suspect]
     Active Substance: CYCLOSPORINE
     Dosage: UNK, BID
     Route: 047

REACTIONS (4)
  - Eyelid irritation [Recovered/Resolved]
  - Eye pruritus [Recovered/Resolved]
  - Scleral hyperaemia [Recovered/Resolved]
  - Inappropriate schedule of drug administration [Unknown]
